FAERS Safety Report 13021372 (Version 1)
Quarter: 2016Q4

REPORT INFORMATION
  Report Type: Spontaneous
  Country: CH (occurrence: CH)
  Receive Date: 20161213
  Receipt Date: 20161213
  Transmission Date: 20170207
  Serious: Yes (Hospitalization, Other)
  Sender: FDA-Public Use
  Company Number: CH-ACCORD-046373

PATIENT
  Age: 43 Year
  Sex: Male

DRUGS (7)
  1. METHOTREXATE. [Suspect]
     Active Substance: METHOTREXATE
     Indication: PSORIASIS
     Dosage: INITIALLY AT 5 MG FOR 3 DAYS, THEN 10 MG DAILY
     Route: 048
  2. MIDAZOLAM [Concomitant]
     Active Substance: MIDAZOLAM\MIDAZOLAM HYDROCHLORIDE
     Indication: DEPRESSION
  3. ACETYLSALICYLIC ACID [Interacting]
     Active Substance: ASPIRIN
     Indication: PRODUCT USED FOR UNKNOWN INDICATION
  4. FOLIC ACID. [Concomitant]
     Active Substance: FOLIC ACID
  5. CLOBETASOL [Concomitant]
     Active Substance: CLOBETASOL
     Indication: PSORIASIS
     Route: 061
  6. METHADONE [Concomitant]
     Active Substance: METHADONE HYDROCHLORIDE
  7. MIRTAZAPINE. [Concomitant]
     Active Substance: MIRTAZAPINE
     Indication: DEPRESSION

REACTIONS (17)
  - Oedema peripheral [Recovered/Resolved]
  - Overdose [Unknown]
  - Dermatitis [Recovered/Resolved]
  - Toxicity to various agents [Recovered/Resolved]
  - Mucocutaneous ulceration [Recovered/Resolved]
  - Erysipelas [Recovered/Resolved]
  - Night sweats [Recovered/Resolved]
  - Drug prescribing error [Unknown]
  - Drug interaction [Unknown]
  - Productive cough [Recovered/Resolved]
  - Balanoposthitis [Recovered/Resolved]
  - Bone marrow failure [Recovered/Resolved]
  - Lichenoid keratosis [Recovered/Resolved]
  - Influenza like illness [Recovered/Resolved]
  - Lymphadenopathy [Recovered/Resolved]
  - Pancytopenia [Recovered/Resolved]
  - Incorrect dose administered [Unknown]
